FAERS Safety Report 9520526 (Version 2)
Quarter: 2013Q3

REPORT INFORMATION
  Report Type: Spontaneous
  Country: US (occurrence: US)
  Receive Date: 20130913
  Receipt Date: 20130913
  Transmission Date: 20140515
  Serious: No
  Sender: FDA-Public Use
  Company Number: US-009507513-2011SP010871

PATIENT
  Age: 28 Year
  Sex: Female
  Weight: 83.92 kg

DRUGS (1)
  1. NUVARING [Suspect]
     Indication: CONTRACEPTION
     Route: 067
     Dates: start: 201101

REACTIONS (2)
  - Metrorrhagia [Not Recovered/Not Resolved]
  - Device expulsion [Not Recovered/Not Resolved]
